FAERS Safety Report 17811816 (Version 1)
Quarter: 2020Q2

REPORT INFORMATION
  Report Type: Spontaneous
  Country: US (occurrence: US)
  Receive Date: 20200521
  Receipt Date: 20200521
  Transmission Date: 20200714
  Serious: Yes (Hospitalization)
  Sender: FDA-Public Use
  Company Number: US-BAYER-2020-091635

PATIENT
  Sex: Female

DRUGS (2)
  1. STIVARGA [Suspect]
     Active Substance: REGORAFENIB
     Dosage: UNK
     Dates: end: 202005
  2. STIVARGA [Suspect]
     Active Substance: REGORAFENIB
     Dosage: LOWER DOSE

REACTIONS (3)
  - Rash [Recovered/Resolved]
  - Pyrexia [None]
  - Rash [None]

NARRATIVE: CASE EVENT DATE: 20200501
